FAERS Safety Report 20432063 (Version 1)
Quarter: 2022Q1

REPORT INFORMATION
  Report Type: Spontaneous
  Country: FI (occurrence: FI)
  Receive Date: 20220204
  Receipt Date: 20220204
  Transmission Date: 20220423
  Serious: Yes (Life-Threatening)
  Sender: FDA-Public Use
  Company Number: None

PATIENT
  Age: 26 Year
  Sex: Female

DRUGS (2)
  1. PEPCID [Suspect]
     Active Substance: FAMOTIDINE
     Indication: Gastrooesophageal reflux disease
     Dosage: 10,MG,X3
     Route: 048
     Dates: start: 20220108, end: 20220109
  2. XYZAL [Concomitant]
     Active Substance: LEVOCETIRIZINE DIHYDROCHLORIDE
     Indication: Hypersensitivity
     Dosage: 5,MG,DAILY
     Route: 048
     Dates: start: 20220105

REACTIONS (7)
  - Depression [Recovered/Resolved]
  - Suicidal ideation [Recovered/Resolved]
  - Abnormal sleep-related event [Recovered/Resolved]
  - Disorientation [Recovered/Resolved]
  - Apathy [Recovered/Resolved]
  - Thinking abnormal [Recovered/Resolved]
  - Irritability [Recovered/Resolved]

NARRATIVE: CASE EVENT DATE: 20220108
